FAERS Safety Report 19745135 (Version 1)
Quarter: 2021Q3

REPORT INFORMATION
  Report Type: Spontaneous
  Country: US (occurrence: US)
  Receive Date: 20210824
  Receipt Date: 20210824
  Transmission Date: 20211014
  Serious: Yes (Hospitalization)
  Sender: FDA-Public Use
  Company Number: None

PATIENT
  Age: 62 Year
  Sex: Female
  Weight: 90 kg

DRUGS (2)
  1. CASIRIVIMAB. [Suspect]
     Active Substance: CASIRIVIMAB
     Indication: COVID-19
     Dosage: ?          OTHER FREQUENCY:ONCE;?
     Route: 042
     Dates: start: 20210816, end: 20210816
  2. IMDEVIMAB. [Suspect]
     Active Substance: IMDEVIMAB
     Indication: COVID-19
     Dosage: ?          OTHER FREQUENCY:ONCE;?
     Route: 042
     Dates: start: 20210816, end: 20210816

REACTIONS (9)
  - Hypoxia [None]
  - Syncope [None]
  - Metabolic encephalopathy [None]
  - Paraesthesia [None]
  - Dyspnoea [None]
  - Loss of consciousness [None]
  - Fall [None]
  - Hypoaesthesia [None]
  - Asthenia [None]

NARRATIVE: CASE EVENT DATE: 20210817
